FAERS Safety Report 5794823-4 (Version None)
Quarter: 2008Q2

REPORT INFORMATION
  Report Type: 
  Country: None (occurrence: None)
  Receive Date: 20080630
  Receipt Date: 20080626
  Transmission Date: 20081010
  Serious: Yes (Hospitalization)
  Sender: FDA-Public Use
  Company Number: B0505774A

PATIENT
  Age: 33 Year
  Sex: Male

DRUGS (8)
  1. ZIAGEN [Suspect]
     Indication: ACQUIRED IMMUNODEFICIENCY SYNDROME
     Dosage: 300MG TWICE PER DAY
     Route: 048
     Dates: start: 20061205
  2. EPIVIR [Suspect]
     Indication: ACQUIRED IMMUNODEFICIENCY SYNDROME
     Dosage: 150MG TWICE PER DAY
     Route: 048
     Dates: start: 20060516
  3. RETROVIR [Suspect]
     Indication: ACQUIRED IMMUNODEFICIENCY SYNDROME
     Dosage: 400MG PER DAY
     Route: 048
     Dates: start: 20060516, end: 20060719
  4. ZERIT [Suspect]
     Indication: ACQUIRED IMMUNODEFICIENCY SYNDROME
     Dosage: 80MG PER DAY
     Route: 048
     Dates: start: 20060720, end: 20061204
  5. KALETRA [Suspect]
     Indication: ACQUIRED IMMUNODEFICIENCY SYNDROME
     Route: 048
     Dates: start: 20060516, end: 20070412
  6. LEXIVA [Suspect]
     Indication: ACQUIRED IMMUNODEFICIENCY SYNDROME
     Dosage: 2800MG PER DAY
     Route: 048
     Dates: start: 20070413
  7. ALESION [Concomitant]
     Indication: RASH
     Dosage: 20MG PER DAY
     Route: 048
     Dates: start: 20070422, end: 20070503
  8. PREDONINE [Concomitant]
     Indication: RASH
     Dosage: 20MG PER DAY
     Dates: start: 20070424, end: 20070427

REACTIONS (11)
  - BACK PAIN [None]
  - CHEST PAIN [None]
  - COUGH [None]
  - DEEP VEIN THROMBOSIS [None]
  - DIARRHOEA [None]
  - NAUSEA [None]
  - OEDEMA PERIPHERAL [None]
  - PAIN IN EXTREMITY [None]
  - POOR PERIPHERAL CIRCULATION [None]
  - PULMONARY EMBOLISM [None]
  - VOMITING [None]
